FAERS Safety Report 6013859-1 (Version None)
Quarter: 2008Q4

REPORT INFORMATION
  Report Type: 
  Country: None (occurrence: None)
  Receive Date: 20081219
  Receipt Date: 20081210
  Transmission Date: 20090506
  Serious: Yes (Other)
  Sender: FDA-Public Use
  Company Number: JP-JNJFOC-20081203557

PATIENT
  Age: 22 Year
  Sex: Male

DRUGS (1)
  1. TOPINA [Suspect]
     Indication: EPILEPSY
     Route: 048

REACTIONS (1)
  - APHASIA [None]
